FAERS Safety Report 5076337-2 (Version None)
Quarter: 2006Q3

REPORT INFORMATION
  Report Type: 
  Country: None (occurrence: None)
  Receive Date: 20060807
  Receipt Date: 20060724
  Transmission Date: 20061208
  Serious: Yes (Other)
  Sender: FDA-Public Use
  Company Number: 2006081084

PATIENT
  Age: 81 Year
  Sex: Male

DRUGS (1)
  1. MACUGEN [Suspect]
     Indication: MACULAR DEGENERATION
     Dosage: PARENTERAL
     Route: 051
     Dates: start: 20060616

REACTIONS (1)
  - RETINAL HAEMORRHAGE [None]
